FAERS Safety Report 7713672-0 (Version None)
Quarter: 2011Q3

REPORT INFORMATION
  Report Type: 
  Country: None (occurrence: None)
  Receive Date: 20110822
  Receipt Date: 20110805
  Transmission Date: 20111222
  Serious: Yes (Other)
  Sender: FDA-Public Use
  Company Number: 2011P1008110

PATIENT
  Age: 68 Year
  Sex: Male
  Weight: 52.6173 kg

DRUGS (3)
  1. FLUOROURACIL [Suspect]
     Indication: SKIN CANCER
     Dosage: TOP
     Route: 061
     Dates: start: 20110520, end: 20110610
  2. FLUOROURACIL [Suspect]
     Indication: PROPHYLAXIS
     Dosage: TOP
     Route: 061
     Dates: start: 20110520, end: 20110610
  3. FLUOROURACIL [Suspect]
     Indication: PRECANCEROUS CELLS PRESENT
     Dosage: TOP
     Route: 061
     Dates: start: 20110520, end: 20110610

REACTIONS (5)
  - HAEMORRHOIDS [None]
  - ERYTHEMA [None]
  - BURNING SENSATION [None]
  - PAIN [None]
  - SQUAMOUS CELL CARCINOMA OF SKIN [None]
